FAERS Safety Report 10231386 (Version 1)
Quarter: 2014Q2

REPORT INFORMATION
  Report Type: Spontaneous
  Country: US (occurrence: US)
  Receive Date: 20140611
  Receipt Date: 20140611
  Transmission Date: 20141212
  Serious: Yes (Hospitalization)
  Sender: FDA-Public Use
  Company Number: US-JNJFOC-20140606553

PATIENT
  Age: 86 Year
  Sex: Female

DRUGS (3)
  1. IMBRUVICA [Suspect]
     Indication: MANTLE CELL LYMPHOMA
     Route: 048
  2. OTHER LIPID MODIFYING AGENTS [Suspect]
     Indication: PRODUCT USED FOR UNKNOWN INDICATION
  3. RITUXAN [Concomitant]

REACTIONS (2)
  - Rhabdomyolysis [Unknown]
  - Diarrhoea [Unknown]
